FAERS Safety Report 22017791 (Version 1)
Quarter: 2023Q1

REPORT INFORMATION
  Report Type: Report from Study
  Country: US (occurrence: US)
  Receive Date: 20230221
  Receipt Date: 20230221
  Transmission Date: 20230418
  Serious: Yes (Other)
  Sender: FDA-Public Use
  Company Number: US-MYLANLABS-202200308269

PATIENT
  Sex: Female

DRUGS (1)
  1. LYRICA [Suspect]
     Active Substance: PREGABALIN
     Indication: Fibromyalgia
     Dosage: 150 MG, 3X/DAY (TAKE 1 CAPSULE THREE TIMES A DAY PRN)
     Route: 065

REACTIONS (3)
  - Parkinson^s disease [Unknown]
  - Musculoskeletal disorder [Unknown]
  - Tremor [Unknown]
